FAERS Safety Report 8272888-8 (Version None)
Quarter: 2012Q2

REPORT INFORMATION
  Report Type: 
  Country: None (occurrence: None)
  Receive Date: 20120411
  Receipt Date: 20120401
  Transmission Date: 20120825
  Serious: No
  Sender: FDA-Public Use
  Company Number: US-BIOGENIDEC-2012BI011322

PATIENT
  Age: 30 Year
  Sex: Female

DRUGS (1)
  1. AVONEX [Suspect]
     Indication: MULTIPLE SCLEROSIS
     Route: 030
     Dates: start: 20110927

REACTIONS (5)
  - BONE PAIN [None]
  - PYREXIA [None]
  - RENAL PAIN [None]
  - DYSURIA [None]
  - URINARY TRACT INFECTION [None]
